FAERS Safety Report 6253202-6 (Version None)
Quarter: 2009Q3

REPORT INFORMATION
  Report Type: 
  Country: None (occurrence: None)
  Receive Date: 20090701
  Receipt Date: 20090621
  Transmission Date: 20100115
  Serious: Yes (Hospitalization)
  Sender: FDA-Public Use
  Company Number: US-MERCK-0906USA04152

PATIENT
  Age: 73 Year
  Sex: Male

DRUGS (2)
  1. VYTORIN [Suspect]
     Indication: BLOOD CHOLESTEROL
     Route: 048
     Dates: start: 20070601, end: 20090621
  2. PLAVIX [Concomitant]
     Route: 065

REACTIONS (2)
  - ASTHENIA [None]
  - FALL [None]
